FAERS Safety Report 16940054 (Version 1)
Quarter: 2019Q4

REPORT INFORMATION
  Report Type: Spontaneous
  Country: KR (occurrence: KR)
  Receive Date: 20191021
  Receipt Date: 20191021
  Transmission Date: 20200122
  Serious: Yes (Other)
  Sender: FDA-Public Use
  Company Number: KR-DENTSPLY-2019SCDP000567

PATIENT
  Age: 42 Year
  Sex: Female

DRUGS (3)
  1. BUPIVACAINE. [Concomitant]
     Active Substance: BUPIVACAINE
     Indication: PRODUCT USED FOR UNKNOWN INDICATION
     Dosage: UNK
  2. LIDOCAINE HCL [Suspect]
     Active Substance: LIDOCAINE HYDROCHLORIDE
     Indication: DENTAL LOCAL ANAESTHESIA
     Dosage: UNK
     Route: 023
  3. MEPIVACAINE HCL [Concomitant]
     Active Substance: MEPIVACAINE HYDROCHLORIDE
     Indication: PRODUCT USED FOR UNKNOWN INDICATION
     Dosage: UNK

REACTIONS (1)
  - Paralysis [Recovered/Resolved]
